FAERS Safety Report 20159455 (Version 1)
Quarter: 2021Q4

REPORT INFORMATION
  Report Type: Spontaneous
  Country: FR (occurrence: FR)
  Receive Date: 20211208
  Receipt Date: 20211208
  Transmission Date: 20220303
  Serious: Yes (Hospitalization, Congenital Anomaly, Other)
  Sender: FDA-Public Use
  Company Number: FR-ABBVIE-21K-056-4187825-00

PATIENT
  Sex: Female
  Weight: 2.9 kg

DRUGS (1)
  1. VALPROATE SODIUM [Suspect]
     Active Substance: VALPROATE SODIUM
     Indication: Maternal exposure timing unspecified
     Route: 064

REACTIONS (15)
  - Bronchiolitis [Unknown]
  - Dysmorphism [Unknown]
  - Autism spectrum disorder [Unknown]
  - Personal relationship issue [Unknown]
  - Plagiocephaly [Unknown]
  - Scoliosis [Unknown]
  - Microcephaly [Unknown]
  - Psychomotor skills impaired [Unknown]
  - Behaviour disorder [Unknown]
  - Communication disorder [Unknown]
  - Speech disorder developmental [Unknown]
  - Visual impairment [Unknown]
  - Ear, nose and throat disorder [Unknown]
  - Learning disorder [Unknown]
  - Disturbance in attention [Unknown]
